FAERS Safety Report 4588240-2 (Version None)
Quarter: 2005Q1

REPORT INFORMATION
  Report Type: 
  Country: None (occurrence: None)
  Receive Date: 20050221
  Receipt Date: 20050210
  Transmission Date: 20050727
  Serious: Yes (Hospitalization)
  Sender: FDA-Public Use
  Company Number: NO-ROCHE-395141

PATIENT
  Age: 57 Year
  Sex: Male

DRUGS (12)
  1. MYCOPHENOLATE MOFETIL [Suspect]
     Route: 065
     Dates: start: 20040224, end: 20040227
  2. MYCOPHENOLATE MOFETIL [Suspect]
     Dosage: RETURN TO PER PROTOCOL DOSE.
     Route: 065
     Dates: start: 20040228, end: 20040304
  3. MYCOPHENOLATE MOFETIL [Suspect]
     Dosage: TO ACHIEVE TARGET AUC.
     Route: 065
     Dates: start: 20040305, end: 20040311
  4. MYCOPHENOLATE MOFETIL [Suspect]
     Dosage: TO ACHIEVE TARGET AUC.
     Route: 065
     Dates: start: 20040312, end: 20040531
  5. MYCOPHENOLATE MOFETIL [Suspect]
     Dosage: RETURN TO PER PROTOCOL DOSE.
     Route: 065
     Dates: start: 20040601, end: 20040810
  6. MYCOPHENOLATE MOFETIL [Suspect]
     Dosage: ADVERSE EVENT.
     Route: 065
     Dates: start: 20040811
  7. CYCLOSPORINE [Suspect]
     Dosage: ADJUSTMENT TO REACH PREDEFINED TARGET LEVELS.
     Route: 065
     Dates: start: 20040224
  8. METHYLPREDNISOLONE [Suspect]
     Dosage: TAPER ACCORDING TO LOCAL PROTOCOL
     Route: 065
     Dates: start: 20040224, end: 20040225
  9. PREDNISOLONE [Suspect]
     Dosage: TAPER ACCORDING TO LOCAL PROTOCOL
     Route: 065
     Dates: start: 20040226
  10. METOPROLOL TARTRATE [Concomitant]
  11. EICOSAPENTAENOIC ACID [Concomitant]
     Dates: start: 20040305
  12. INSULIN [Concomitant]

REACTIONS (2)
  - LYMPHOCELE [None]
  - WOUND DEHISCENCE [None]
